FAERS Safety Report 5125619-4 (Version None)
Quarter: 2006Q4

REPORT INFORMATION
  Report Type: 
  Country: None (occurrence: None)
  Receive Date: 20061006
  Receipt Date: 20060920
  Transmission Date: 20070319
  Serious: Yes (Hospitalization)
  Sender: FDA-Public Use
  Company Number: REM_00239_2006

PATIENT
  Age: 10 Year
  Sex: Male
  Weight: 34.6 kg

DRUGS (3)
  1. REMODULIN [Suspect]
     Indication: PULMONARY HYPERTENSION
     Dosage: 21 NG/KG/MIN CONTINUOUS IV
     Route: 042
     Dates: start: 20060607, end: 20060718
  2. PLAVIX [Concomitant]
  3. REVATIO [Concomitant]

REACTIONS (4)
  - ABDOMINAL PAIN UPPER [None]
  - BLOOD CULTURE POSITIVE [None]
  - CATHETER RELATED INFECTION [None]
  - STENOTROPHOMONAS INFECTION [None]
